FAERS Safety Report 6812073-7 (Version None)
Quarter: 2010Q2

REPORT INFORMATION
  Report Type: 
  Country: None (occurrence: None)
  Receive Date: 20100628
  Receipt Date: 20100615
  Transmission Date: 20101027
  Serious: Yes (Hospitalization)
  Sender: FDA-Public Use
  Company Number: 6049382

PATIENT
  Age: 50 Year
  Sex: Female

DRUGS (2)
  1. LEVOTHYROXINE SODIUM [Suspect]
     Indication: HYPOTHYROIDISM
     Dosage: 562.5 MCG (187.5 MCG, 3 IN 1 D) ORAL
     Route: 048
     Dates: start: 20080401, end: 20081202
  2. LORAZEPAM [Concomitant]

REACTIONS (5)
  - MENTAL DISORDER [None]
  - NERVOUSNESS [None]
  - OVERDOSE [None]
  - RESTLESSNESS [None]
  - TACHYCARDIA [None]
